FAERS Safety Report 13659692 (Version 1)
Quarter: 2017Q2

REPORT INFORMATION
  Report Type: Spontaneous
  Country: US (occurrence: US)
  Receive Date: 20170616
  Receipt Date: 20170616
  Transmission Date: 20170830
  Serious: No
  Sender: FDA-Public Use
  Company Number: US-GLAXOSMITHKLINE-US2017092260

PATIENT
  Age: 87 Year
  Sex: Female

DRUGS (2)
  1. LEVOTHYROXINE. [Concomitant]
     Active Substance: LEVOTHYROXINE
  2. VENTOLIN HFA [Suspect]
     Active Substance: ALBUTEROL SULFATE
     Indication: RESPIRATION ABNORMAL
     Dosage: 2 PUFF(S), PRN
     Route: 055
     Dates: start: 201702

REACTIONS (4)
  - Dyspnoea [Not Recovered/Not Resolved]
  - Underdose [Unknown]
  - Drug dose omission [Not Recovered/Not Resolved]
  - Product cleaning inadequate [Unknown]

NARRATIVE: CASE EVENT DATE: 201705
